FAERS Safety Report 5977428-1 (Version None)
Quarter: 2008Q4

REPORT INFORMATION
  Report Type: 
  Country: None (occurrence: None)
  Receive Date: 20081203
  Receipt Date: 20081125
  Transmission Date: 20090506
  Serious: Yes (Other)
  Sender: FDA-Public Use
  Company Number: US-ASTRAZENECA-2008UW09415

PATIENT
  Age: 15797 Day
  Sex: Female
  Weight: 132 kg

DRUGS (13)
  1. SEROQUEL [Suspect]
     Indication: AFFECTIVE DISORDER
     Dosage: 50 TO 400 MG
     Route: 048
     Dates: start: 20070101
  2. SEROQUEL [Suspect]
     Indication: INSOMNIA
     Dosage: 50 TO 400 MG
     Route: 048
     Dates: start: 20070101
  3. SEROQUEL [Suspect]
     Indication: DEPRESSION
     Dosage: 50 TO 400 MG
     Route: 048
     Dates: start: 20070101
  4. XANAX [Concomitant]
     Dosage: .25 TO .5 MG
     Dates: start: 20060101
  5. ABILIFY [Concomitant]
     Dates: start: 20050301, end: 20050601
  6. GEODON [Concomitant]
     Dates: start: 20050101
  7. ZYPREXA [Concomitant]
     Dosage: 10 MG
     Dates: start: 20050101
  8. COMPAZINE [Concomitant]
     Dates: start: 20050101
  9. CLONAZEPAM [Concomitant]
     Dates: start: 20050101, end: 20070101
  10. EFFEXOR [Concomitant]
     Dates: start: 20040101, end: 20060101
  11. TOPAMAX [Concomitant]
     Dosage: 20 TO 200 MG
     Dates: start: 20040101, end: 20080101
  12. DEPAKOTE [Concomitant]
     Dates: start: 20050101, end: 20060101
  13. BUSPAR [Concomitant]
     Dates: start: 20080101

REACTIONS (3)
  - ARTHROPATHY [None]
  - DIABETES MELLITUS [None]
  - MENISCUS LESION [None]
